FAERS Safety Report 9056312 (Version 2)
Quarter: 2013Q1

REPORT INFORMATION
  Report Type: Report from Study
  Country: FR (occurrence: FR)
  Receive Date: 20130204
  Receipt Date: 20130206
  Transmission Date: 20140127
  Serious: Yes (Death, Other)
  Sender: FDA-Public Use
  Company Number: FR-MERCK-1301FRA012686

PATIENT
  Sex: Female
  Weight: 96 kg

DRUGS (12)
  1. SITAGLIPTIN PHOSPHATE [Suspect]
     Indication: TYPE 2 DIABETES MELLITUS
     Dosage: 100 MG, QD
     Route: 048
     Dates: start: 20100426, end: 20100720
  2. METFORMIN [Concomitant]
     Dosage: 1000 MG, QD
     Dates: start: 20100426, end: 20100720
  3. METFORMIN [Concomitant]
     Dosage: 500 MG, TID
     Dates: start: 20100720, end: 20101019
  4. METFORMIN [Concomitant]
     Dosage: 1000 MG, TID
     Dates: start: 20101019, end: 20110119
  5. METFORMIN [Concomitant]
     Dosage: 1000 MG, BID
     Dates: start: 20110119, end: 20110902
  6. METFORMIN [Concomitant]
     Dosage: 1000 MG, TID
     Dates: start: 20110902, end: 20120702
  7. AMAREL [Concomitant]
     Dosage: 4 MG, QD
     Dates: start: 20100720, end: 20110119
  8. AMAREL [Concomitant]
     Dosage: 3 MG, QD
     Dates: start: 20110119, end: 20110406
  9. AMAREL [Concomitant]
     Dosage: 4 MG, QD
     Dates: start: 20110406, end: 20120702
  10. AMAREL [Concomitant]
     Dosage: 2 MG, QD
     Dates: start: 20110406, end: 20120329
  11. AMAREL [Concomitant]
     Dosage: 3 MG, QD
     Dates: start: 20120702
  12. STAGID [Concomitant]
     Dosage: 3 DF, QD
     Dates: start: 20120702

REACTIONS (3)
  - Gastric cancer [Fatal]
  - Hypoglycaemia [Unknown]
  - Drug ineffective [Unknown]
